FAERS Safety Report 20060421 (Version 2)
Quarter: 2022Q1

REPORT INFORMATION
  Report Type: Other
  Country: PT (occurrence: PT)
  Receive Date: 20211112
  Receipt Date: 20220223
  Transmission Date: 20220423
  Serious: Yes (Death, Congenital Anomaly, Other)
  Sender: FDA-Public Use
  Company Number: PT-MACLEODS PHARMACEUTICALS US LTD-MAC2021033297

PATIENT

DRUGS (3)
  1. TENOFOVIR DISOPROXIL [Suspect]
     Active Substance: TENOFOVIR DISOPROXIL
     Indication: Product used for unknown indication
     Dosage: 245 MILLIGRAM, QD, 1 COURSE, PRIOR TO CONCEPTION AND EXPOSURE DURING FIRST TRIMESTER
     Route: 064
  2. EMTRICITABINE [Suspect]
     Active Substance: EMTRICITABINE
     Indication: Product used for unknown indication
     Dosage: 200 MILLIGRAM, QD, 1 COURSE, PRIOR TO CONCEPTION, EXPOSURE AT 1ST TRIMESTER
     Route: 064
  3. TIVICAY [Suspect]
     Active Substance: DOLUTEGRAVIR SODIUM
     Indication: Product used for unknown indication
     Dosage: 50 MILLIGRAM, QD, 1 COURSE, PRIOR TO CONCEPTION, EXPOSURE AT 1ST TRIMESTER
     Route: 064

REACTIONS (2)
  - Pulmonary hypoplasia [Fatal]
  - Foetal exposure during pregnancy [Unknown]
